FAERS Safety Report 5642589-0 (Version None)
Quarter: 2008Q1

REPORT INFORMATION
  Report Type: 
  Country: None (occurrence: None)
  Receive Date: 20080227
  Receipt Date: 20080227
  Transmission Date: 20080703
  Serious: Yes (Hospitalization)
  Sender: FDA-Public Use
  Company Number: None

PATIENT
  Sex: Male
  Weight: 157.8518 kg

DRUGS (9)
  1. COUMADIN [Suspect]
     Indication: AORTIC VALVE REPLACEMENT
     Dosage: 8 MG PO MON -} FRI;  6 MG PO SAT + SUN  (THERAPY DATES: PRIOR TO ADMISSION)
     Route: 048
  2. ADVAIR DISKUS 100/50 [Concomitant]
  3. ACTOS [Concomitant]
  4. ZOLOFT [Concomitant]
  5. AMARYL [Concomitant]
  6. ATENOLOL [Concomitant]
  7. TORSEMIDE [Concomitant]
  8. LIPITOR [Concomitant]
  9. PROTONIX [Concomitant]

REACTIONS (2)
  - ANAEMIA [None]
  - DYSPNOEA [None]
